FAERS Safety Report 6693257-8 (Version None)
Quarter: 2010Q2

REPORT INFORMATION
  Report Type: 
  Country: None (occurrence: None)
  Receive Date: 20100422
  Receipt Date: 20100412
  Transmission Date: 20101027
  Serious: Yes (Hospitalization)
  Sender: FDA-Public Use
  Company Number: GR-MERCK-1004GRC00001

PATIENT
  Age: 75 Year
  Sex: Male

DRUGS (6)
  1. COSOPT [Suspect]
     Indication: INTRAOCULAR PRESSURE INCREASED
     Route: 047
  2. LATANOPROST [Concomitant]
     Indication: INTRAOCULAR PRESSURE INCREASED
     Route: 047
  3. [THERAPY UNSPECIFIED] [Concomitant]
     Indication: INTRAOCULAR PRESSURE INCREASED
     Route: 042
  4. [THERAPY UNSPECIFIED] [Concomitant]
     Route: 042
  5. BEVACIZUMAB [Concomitant]
     Indication: MACULAR DEGENERATION
     Route: 047
  6. METOPROLOL TARTRATE [Concomitant]
     Indication: HYPERTENSION
     Route: 048

REACTIONS (2)
  - DRUG INEFFECTIVE [None]
  - INTRAOCULAR PRESSURE INCREASED [None]
